FAERS Safety Report 12644435 (Version 8)
Quarter: 2017Q4

REPORT INFORMATION
  Report Type: Report from Study
  Country: BR (occurrence: BR)
  Receive Date: 20160811
  Receipt Date: 20171018
  Transmission Date: 20180320
  Serious: Yes (Other)
  Sender: FDA-Public Use
  Company Number: PHHY2015BR153097

PATIENT
  Age: 61 Year
  Sex: Female
  Weight: 70 kg

DRUGS (9)
  1. SIMVASTATIN. [Concomitant]
     Active Substance: SIMVASTATIN
     Indication: HYPERCHOLESTEROLAEMIA
     Dosage: 1 DF, QD (1 TABLET A DAY)
     Route: 048
     Dates: start: 201501
  2. NPH INSULIN [Concomitant]
     Active Substance: INSULIN BEEF
     Indication: DIABETES MELLITUS
     Dosage: 3 DF, QD (3 DOSES A DAY)
     Route: 058
     Dates: start: 201501
  3. SANDOSTATIN LAR DEPOT [Suspect]
     Active Substance: OCTREOTIDE ACETATE
     Indication: ACROMEGALY
     Dosage: 20 MG, QMO (ONCE A MONTH)
     Route: 030
     Dates: start: 20150129
  4. SANDOSTATIN LAR DEPOT [Suspect]
     Active Substance: OCTREOTIDE ACETATE
     Dosage: 30 MG, QMO (DOSE EVERY 30 DAYS)
     Route: 030
     Dates: start: 201501, end: 201610
  5. SANDOSTATIN LAR DEPOT [Suspect]
     Active Substance: OCTREOTIDE ACETATE
     Dosage: 20 OT, UNK
     Route: 030
  6. INSULIN [Concomitant]
     Active Substance: INSULIN NOS
     Indication: DIABETES MELLITUS
     Dosage: 3 DF, QD (3 DOSES A DAY)
     Route: 058
     Dates: start: 201501
  7. METFORMIN [Concomitant]
     Active Substance: METFORMIN HYDROCHLORIDE
     Indication: DIABETES MELLITUS
     Dosage: 3 DF, QD (3 TABLETS A DAY)
     Route: 048
     Dates: start: 201501
  8. DIOVAN HCT [Suspect]
     Active Substance: HYDROCHLOROTHIAZIDE\VALSARTAN
     Indication: HYPERTENSION
     Dosage: 1 DF, QD
     Route: 048
  9. ALENDRONATE SODIUM. [Concomitant]
     Active Substance: ALENDRONATE SODIUM
     Indication: OSTEOPOROSIS
     Dosage: 60 MG, QW (1 TAB PER WEEK)
     Route: 048

REACTIONS (29)
  - Chills [Unknown]
  - Pruritus [Unknown]
  - Flavivirus infection [Unknown]
  - Malaise [Unknown]
  - Hormone level abnormal [Unknown]
  - Feeling hot [Recovering/Resolving]
  - Weight decreased [Recovering/Resolving]
  - Neoplasm progression [Unknown]
  - Inflammation [Unknown]
  - Pain [Recovering/Resolving]
  - Application site pain [Unknown]
  - Arthralgia [Unknown]
  - Increased appetite [Unknown]
  - Hypertension [Unknown]
  - Nasopharyngitis [Unknown]
  - Diabetes mellitus [Not Recovered/Not Resolved]
  - Headache [Recovered/Resolved]
  - Foot deformity [Recovering/Resolving]
  - Crying [Unknown]
  - Pyrexia [Unknown]
  - Tremor [Unknown]
  - Hyperphagia [Unknown]
  - Fear of injection [Unknown]
  - Blood glucose increased [Recovered/Resolved]
  - Pain in extremity [Recovered/Resolved]
  - Weight increased [Unknown]
  - Gait disturbance [Unknown]
  - Blood glucose decreased [Recovered/Resolved]
  - Fatigue [Recovered/Resolved]

NARRATIVE: CASE EVENT DATE: 201502
